FAERS Safety Report 25106242 (Version 1)
Quarter: 2025Q1

REPORT INFORMATION
  Report Type: Spontaneous
  Country: US (occurrence: None)
  Receive Date: 20250320
  Receipt Date: 20250320
  Transmission Date: 20250408
  Serious: Yes (Life-Threatening)
  Sender: FDA-CTU
  Company Number: None

PATIENT
  Age: 88 Year
  Sex: Male
  Weight: 58 kg

DRUGS (1)
  1. MEROPENEM [Suspect]
     Active Substance: MEROPENEM
     Indication: Seizure
     Dosage: FREQUENCY : TWICE A DAY;?
     Route: 042
     Dates: start: 20250220, end: 20250222

REACTIONS (1)
  - Seizure [None]

NARRATIVE: CASE EVENT DATE: 20250222
